FAERS Safety Report 17476874 (Version 1)
Quarter: 2020Q1

REPORT INFORMATION
  Report Type: Report from Study
  Country: SE (occurrence: SE)
  Receive Date: 20200228
  Receipt Date: 20200228
  Transmission Date: 20200409
  Serious: Yes (Hospitalization, Other)
  Sender: FDA-Public Use
  Company Number: SE-JNJFOC-20191037928

PATIENT

DRUGS (10)
  1. METRONIDAZOLE. [Concomitant]
     Active Substance: METRONIDAZOLE
  2. VITAMIN B12 [Concomitant]
     Active Substance: CYANOCOBALAMIN
  3. REMICADE [Suspect]
     Active Substance: INFLIXIMAB
     Indication: PRODUCT USED FOR UNKNOWN INDICATION
     Route: 042
  4. 5-AMINOSALICYLIC ACID [Concomitant]
     Active Substance: MESALAMINE
  5. IRON [Concomitant]
     Active Substance: IRON
  6. METHOTREXATE. [Concomitant]
     Active Substance: METHOTREXATE
  7. SIMPONI [Suspect]
     Active Substance: GOLIMUMAB
     Indication: PRODUCT USED FOR UNKNOWN INDICATION
     Route: 058
  8. CIPROFLOXACIN. [Concomitant]
     Active Substance: CIPROFLOXACIN
  9. FOLATE [Concomitant]
     Active Substance: FOLATE SODIUM
  10. BUDESONIDE. [Concomitant]
     Active Substance: BUDESONIDE
     Route: 048

REACTIONS (6)
  - Product use issue [Unknown]
  - Infection [Unknown]
  - Skin infection [Unknown]
  - Gastrointestinal infection [Unknown]
  - Off label use [Unknown]
  - Respiratory tract infection [Unknown]
